FAERS Safety Report 16137371 (Version 1)
Quarter: 2019Q1

REPORT INFORMATION
  Report Type: Report from Study
  Country: None (occurrence: CL)
  Receive Date: 20190330
  Receipt Date: 20190330
  Transmission Date: 20190418
  Serious: Yes (Other)
  Sender: FDA-Public Use
  Company Number: CL-ABBVIE-19K-034-2722077-00

PATIENT
  Sex: Female

DRUGS (1)
  1. HUMIRA [Suspect]
     Active Substance: ADALIMUMAB
     Indication: RHEUMATOID ARTHRITIS
     Route: 058
     Dates: start: 20180123

REACTIONS (4)
  - Head injury [Recovering/Resolving]
  - Fall [Recovering/Resolving]
  - Skin mass [Not Recovered/Not Resolved]
  - Joint injury [Recovering/Resolving]

NARRATIVE: CASE EVENT DATE: 20180201
